FAERS Safety Report 9638108 (Version 1)
Quarter: 2013Q4

REPORT INFORMATION
  Report Type: Spontaneous
  Country: US (occurrence: None)
  Receive Date: 20131021
  Receipt Date: 20131021
  Transmission Date: 20140711
  Serious: No
  Sender: FDA-Public Use
  Company Number: None

PATIENT
  Sex: Male
  Weight: 29.1 kg

DRUGS (2)
  1. VECAMYL [Suspect]
     Indication: TOURETTE^S DISORDER
     Dosage: FILLED 30DAY SUPPLY ONCE 7/26/13?1/2 TAB HS, TITRATE TO TID
     Route: 048
     Dates: start: 20130726
  2. VECAMYL [Suspect]
     Indication: AFFECTIVE DISORDER
     Dosage: FILLED 30DAY SUPPLY ONCE 7/26/13?1/2 TAB HS, TITRATE TO TID
     Route: 048
     Dates: start: 20130726

REACTIONS (2)
  - Drug ineffective [None]
  - Aggression [None]
